FAERS Safety Report 5235124-2 (Version None)
Quarter: 2007Q1

REPORT INFORMATION
  Report Type: 
  Country: None (occurrence: None)
  Receive Date: 20070207
  Receipt Date: 20070122
  Transmission Date: 20070707
  Serious: Yes (Life-Threatening, Hospitalization)
  Sender: FDA-Public Use
  Company Number: DSA_29280_2007

PATIENT
  Age: 41 Year
  Sex: Female

DRUGS (2)
  1. TAVOR    /00273201/ [Suspect]
     Dosage: 30 MG ONCE PO
     Route: 048
     Dates: start: 20070120, end: 20070120
  2. ZYPREXA [Suspect]
     Dosage: 50 MG ONCE PO
     Route: 048
     Dates: start: 20070120, end: 20070120

REACTIONS (4)
  - FATIGUE [None]
  - OVERDOSE [None]
  - SUICIDE ATTEMPT [None]
  - VOMITING [None]
